FAERS Safety Report 10649402 (Version 1)
Quarter: 2014Q4

REPORT INFORMATION
  Report Type: Spontaneous
  Country: US (occurrence: None)
  Receive Date: 20141211
  Receipt Date: 20141211
  Transmission Date: 20150529
  Serious: Yes (Hospitalization)
  Sender: FDA-Public Use
  Company Number: None

PATIENT
  Age: 83 Year
  Sex: Male
  Weight: 82.5 kg

DRUGS (6)
  1. DICYCLOMINE [Suspect]
     Active Substance: DICYCLOMINE HYDROCHLORIDE
     Indication: NAUSEA
     Route: 048
     Dates: start: 20141125, end: 20141128
  2. CIPROFLOXACIN. [Suspect]
     Active Substance: CIPROFLOXACIN
     Indication: VOMITING
     Route: 048
     Dates: start: 20141125, end: 20141128
  3. CIPROFLOXACIN. [Suspect]
     Active Substance: CIPROFLOXACIN
     Indication: DIARRHOEA
     Route: 048
     Dates: start: 20141125, end: 20141128
  4. CIPROFLOXACIN. [Suspect]
     Active Substance: CIPROFLOXACIN
     Indication: NAUSEA
     Route: 048
     Dates: start: 20141125, end: 20141128
  5. DICYCLOMINE [Suspect]
     Active Substance: DICYCLOMINE HYDROCHLORIDE
     Indication: VOMITING
     Route: 048
     Dates: start: 20141125, end: 20141128
  6. DICYCLOMINE [Suspect]
     Active Substance: DICYCLOMINE HYDROCHLORIDE
     Indication: DIARRHOEA
     Route: 048
     Dates: start: 20141125, end: 20141128

REACTIONS (2)
  - Delirium [None]
  - Hallucination [None]

NARRATIVE: CASE EVENT DATE: 20141128
